FAERS Safety Report 4407823-3 (Version None)
Quarter: 2004Q3

REPORT INFORMATION
  Report Type: 
  Country: None (occurrence: None)
  Receive Date: 20040726
  Receipt Date: 20040519
  Transmission Date: 20050211
  Serious: Yes (Death, Hospitalization)
  Sender: FDA-Public Use
  Company Number: FR-GLAXOSMITHKLINE-B0333385A

PATIENT
  Age: 21 Year
  Sex: Male

DRUGS (12)
  1. ALKERAN [Suspect]
     Dosage: 260MG PER DAY
     Route: 042
     Dates: start: 20010101, end: 20010101
  2. PAROXETINE HCL [Suspect]
     Route: 048
     Dates: start: 20030101
  3. BLEOMYCIN [Suspect]
     Dosage: 110MG PER DAY
     Route: 042
     Dates: start: 20010601, end: 20010101
  4. BICNU [Suspect]
     Dosage: 550MG PER DAY
     Route: 042
     Dates: start: 20010101, end: 20010101
  5. ENDOXAN [Suspect]
     Dosage: 7.4G PER DAY
     Route: 042
     Dates: start: 20010101, end: 20010101
  6. VINBLASTINE SULFATE [Suspect]
     Indication: LYMPHOMA
     Dosage: 90MG PER DAY
     Route: 042
     Dates: start: 20010601, end: 20010101
  7. LEXOMIL [Suspect]
     Route: 048
     Dates: start: 20030101
  8. ADRIBLASTINE [Suspect]
     Indication: LYMPHOMA
     Dosage: 370MG PER DAY
     Route: 042
     Dates: start: 20010601, end: 20010101
  9. DETICENE [Suspect]
     Indication: LYMPHOMA
     Dosage: 5550MG PER DAY
     Route: 042
     Dates: start: 20010601, end: 20010101
  10. VEPESID [Suspect]
     Indication: LYMPHOMA
     Dosage: 1480MG PER DAY
     Route: 042
     Dates: start: 20010101, end: 20010101
  11. ARACYTINE [Suspect]
     Indication: LYMPHOMA
     Dosage: 2960MG PER DAY
     Route: 042
     Dates: start: 20010101, end: 20010101
  12. RADIOTHERAPY [Suspect]
     Dates: start: 20020101, end: 20020401

REACTIONS (7)
  - ABDOMINAL PAIN [None]
  - ASTHENIA [None]
  - COUGH [None]
  - DISEASE PROGRESSION [None]
  - DYSPNOEA [None]
  - PULMONARY FIBROSIS [None]
  - RESPIRATORY DISTRESS [None]
